FAERS Safety Report 4431328-7 (Version None)
Quarter: 2004Q3

REPORT INFORMATION
  Report Type: 
  Country: None (occurrence: None)
  Receive Date: 20040818
  Receipt Date: 20040811
  Transmission Date: 20050211
  Serious: Yes (Death)
  Sender: FDA-Public Use
  Company Number: 04H-163-0270354

PATIENT

DRUGS (3)
  1. DEXTRAN 40 (LMD) (DEXTRAN 40 INJECTION) (DEXTRAN) (DEXTRAN) [Suspect]
     Indication: POOR PERIPHERAL CIRCULATION
     Dosage: SEE IMAGE
     Route: 040
  2. DEXTRAN 40 (LMD) (DEXTRAN 40 INJECTION) (DEXTRAN) (DEXTRAN) [Suspect]
     Indication: POOR PERIPHERAL CIRCULATION
     Dosage: SEE IMAGE
     Route: 040
  3. HEPARIN SODIUM [Concomitant]

REACTIONS (1)
  - DEATH [None]
